FAERS Safety Report 24065295 (Version 2)
Quarter: 2024Q3

REPORT INFORMATION
  Report Type: Spontaneous
  Country: US (occurrence: US)
  Receive Date: 20240709
  Receipt Date: 20240715
  Transmission Date: 20241016
  Serious: Yes (Life-Threatening, Hospitalization)
  Sender: PFIZER
  Company Number: US-MLMSERVICE-20240626-PI112507-00145-1

PATIENT
  Sex: Female

DRUGS (1)
  1. FENTANYL CITRATE [Suspect]
     Active Substance: FENTANYL CITRATE
     Dosage: UNK
     Route: 064

REACTIONS (6)
  - Maternal exposure timing unspecified [Unknown]
  - Toxicity to various agents [Unknown]
  - Neonatal complications of substance abuse [Unknown]
  - Oppositional defiant disorder [Unknown]
  - Disinhibited social engagement disorder of childhood [Unknown]
  - Attention deficit hyperactivity disorder [Unknown]
